FAERS Safety Report 21312357 (Version 1)
Quarter: 2022Q3

REPORT INFORMATION
  Report Type: Spontaneous
  Country: US (occurrence: None)
  Receive Date: 20220909
  Receipt Date: 20220909
  Transmission Date: 20221027
  Serious: No
  Sender: FDA-Public Use
  Company Number: US-ARIS GLOBAL-202206-1005

PATIENT
  Sex: Female

DRUGS (3)
  1. OXERVATE [Suspect]
     Active Substance: CENEGERMIN-BKBJ
     Indication: Neurotrophic keratopathy
     Route: 047
     Dates: start: 20220509
  2. XIIDRA [Concomitant]
     Active Substance: LIFITEGRAST
     Dosage: 5 % DROPERETTE
  3. YUVAFEM [Concomitant]
     Active Substance: ESTRADIOL HEMIHYDRATE

REACTIONS (1)
  - Ocular hyperaemia [Unknown]
